FAERS Safety Report 17062524 (Version 3)
Quarter: 2020Q1

REPORT INFORMATION
  Report Type: Spontaneous
  Country: US (occurrence: US)
  Receive Date: 20191122
  Receipt Date: 20200207
  Transmission Date: 20200409
  Serious: Yes (Hospitalization, Other)
  Sender: FDA-Public Use
  Company Number: US-SUN PHARMACEUTICAL INDUSTRIES LTD-2019R1-228384

PATIENT
  Sex: Female

DRUGS (2)
  1. TADALAFIL. [Concomitant]
     Active Substance: TADALAFIL
     Indication: PRODUCT USED FOR UNKNOWN INDICATION
     Route: 065
  2. AMBRISENTAN [Suspect]
     Active Substance: AMBRISENTAN
     Indication: PRODUCT USED FOR UNKNOWN INDICATION
     Dosage: 10 MILLIGRAM, QD
     Route: 048
     Dates: start: 20191018

REACTIONS (13)
  - Pneumonia [Unknown]
  - Dizziness [Unknown]
  - Cardiac failure [Unknown]
  - Urinary tract infection [Unknown]
  - Asthenia [Unknown]
  - Treatment noncompliance [Unknown]
  - Syncope [Unknown]
  - Asphyxia [Unknown]
  - Dyspnoea [Unknown]
  - Fatigue [Unknown]
  - Oxygen saturation decreased [Unknown]
  - Swelling [Unknown]
  - Hypertension [Unknown]

NARRATIVE: CASE EVENT DATE: 2019
